FAERS Safety Report 8328996-6 (Version None)
Quarter: 2012Q2

REPORT INFORMATION
  Report Type: 
  Country: None (occurrence: None)
  Receive Date: 20120502
  Receipt Date: 20120423
  Transmission Date: 20120825
  Serious: Yes (Disabling)
  Sender: FDA-Public Use
  Company Number: BE-JNJFOC-20120411831

PATIENT
  Sex: Female

DRUGS (6)
  1. COVERSYL PLUS [Concomitant]
  2. XARELTO [Suspect]
     Indication: CEREBROVASCULAR ACCIDENT PROPHYLAXIS
     Route: 048
     Dates: start: 20120131, end: 20120419
  3. OLMESARTAN MEDOXOMIL [Concomitant]
  4. CORDARONE [Concomitant]
  5. CRESTOR [Concomitant]
  6. MOXON [Concomitant]

REACTIONS (2)
  - DIZZINESS [None]
  - DECREASED APPETITE [None]
